FAERS Safety Report 4312177-7 (Version None)
Quarter: 2004Q1

REPORT INFORMATION
  Report Type: 
  Country: None (occurrence: None)
  Receive Date: 20040304
  Receipt Date: 20040304
  Transmission Date: 20041129
  Serious: Yes (Life-Threatening, Hospitalization)
  Sender: FDA-Public Use
  Company Number: None

PATIENT
  Age: 29 Year
  Sex: Female
  Weight: 88.4514 kg

DRUGS (3)
  1. LEVAQUIN [Suspect]
     Indication: SINUSITIS
     Dosage: 1 1 ORAL
     Route: 048
     Dates: start: 20040302, end: 20040302
  2. ALLEGRA [Concomitant]
  3. FLONASE [Concomitant]

REACTIONS (3)
  - DYSPNOEA [None]
  - SWELLING [None]
  - THROAT TIGHTNESS [None]
